FAERS Safety Report 23068782 (Version 2)
Quarter: 2023Q4

REPORT INFORMATION
  Report Type: Spontaneous
  Country: HR (occurrence: HR)
  Receive Date: 20231016
  Receipt Date: 20231101
  Transmission Date: 20240109
  Serious: Yes (Other)
  Sender: FDA-Public Use
  Company Number: None

PATIENT
  Sex: Female

DRUGS (5)
  1. IBUPROFEN [Suspect]
     Active Substance: IBUPROFEN
     Indication: Product used for unknown indication
     Dosage: 6 GRAM, QD (10) TBL X 600 MG
     Route: 048
     Dates: start: 20230817, end: 20230817
  2. IBUPROFEN [Suspect]
     Active Substance: IBUPROFEN
     Dosage: 10 DOSAGE FORM, TOTAL (10 TABLETS OF 600 MG)
     Route: 065
  3. NORMABEL [Suspect]
     Active Substance: DIAZEPAM
     Indication: Product used for unknown indication
     Dosage: 50 MILLIGRAM, QD(10 TBL X 5 MG)
     Route: 048
     Dates: start: 20230817, end: 20230817
  4. NORMABEL [Suspect]
     Active Substance: DIAZEPAM
     Dosage: 10 DOSAGE FORM, TOTAL (10 TABLETS OF 5 MG)
     Route: 065
  5. BISOPROLOL FUMARATE [Suspect]
     Active Substance: BISOPROLOL FUMARATE
     Indication: Product used for unknown indication
     Dosage: UNK (A COUPLE OF TABLETS)
     Route: 048
     Dates: start: 20230817, end: 20230817

REACTIONS (4)
  - Oxygen saturation decreased [Unknown]
  - Suicide attempt [Unknown]
  - Bradycardia [Unknown]
  - Intentional overdose [Unknown]

NARRATIVE: CASE EVENT DATE: 20230817
